FAERS Safety Report 22266535 (Version 5)
Quarter: 2023Q2

REPORT INFORMATION
  Report Type: Spontaneous
  Country: FR (occurrence: FR)
  Receive Date: 20230428
  Receipt Date: 20230614
  Transmission Date: 20230721
  Serious: Yes (Hospitalization, Other)
  Sender: FDA-Public Use
  Company Number: FR-JNJFOC-20230445075

PATIENT
  Age: 61 Year
  Sex: Male
  Weight: 54 kg

DRUGS (36)
  1. RYBREVANT [Suspect]
     Active Substance: AMIVANTAMAB-VMJW
     Indication: Non-small cell lung cancer metastatic
     Dosage: TOTAL NUMBER OF INFUSION: 6
     Route: 042
     Dates: start: 20230315, end: 20230420
  2. RYBREVANT [Suspect]
     Active Substance: AMIVANTAMAB-VMJW
     Dosage: MOST RECENT INFUSION WAS 28-APR-2023?PERFUSION RECEIVED: 6
     Route: 065
     Dates: start: 20230414
  3. MORPHINE SULFATE [Concomitant]
     Active Substance: MORPHINE SULFATE
     Indication: Abdominal pain
     Route: 048
     Dates: start: 20230303
  4. MORPHINE SULFATE [Concomitant]
     Active Substance: MORPHINE SULFATE
     Route: 065
  5. MORPHINE SULFATE [Concomitant]
     Active Substance: MORPHINE SULFATE
     Dosage: UPTO 6 PER DAY
     Route: 065
  6. MORPHINE SULFATE [Concomitant]
     Active Substance: MORPHINE SULFATE
     Dosage: IF PAIN NOT RELIEVED
     Route: 065
  7. SKENAN [Concomitant]
     Active Substance: MORPHINE SULFATE
     Indication: Abdominal pain
     Dosage: 60 X2
     Route: 048
     Dates: start: 20230303
  8. SKENAN [Concomitant]
     Active Substance: MORPHINE SULFATE
     Dosage: 1 CAPSULE MORNING AND EVENING
     Route: 065
  9. SKENAN [Concomitant]
     Active Substance: MORPHINE SULFATE
     Dosage: 1 CAPSULE MORNING AND EVENING
     Route: 065
  10. SKENAN [Concomitant]
     Active Substance: MORPHINE SULFATE
     Dosage: : 1 TABLET IN THE MORNING AND EVENING
     Route: 065
  11. DOLIPRANE [Concomitant]
     Active Substance: ACETAMINOPHEN
     Indication: Pain
     Route: 048
     Dates: start: 20230401
  12. DOLIPRANE [Concomitant]
     Active Substance: ACETAMINOPHEN
     Dosage: IF PAIN
     Route: 065
  13. CLINUTREN PRELOAD [Concomitant]
     Dosage: 1 UNIT UNSPECIFIED/DAY
     Route: 065
  14. PANTOPRAZOLE [Concomitant]
     Active Substance: PANTOPRAZOLE
     Indication: Gastrooesophageal reflux disease
     Dosage: IN THE EVENING
     Route: 048
     Dates: start: 20230303
  15. PANTOPRAZOLE [Concomitant]
     Active Substance: PANTOPRAZOLE
     Dosage: ONE TABLET IN THE MORNING
     Route: 065
  16. PANTOPRAZOLE [Concomitant]
     Active Substance: PANTOPRAZOLE
     Dosage: ONE TABLET IN THE MORNING AND EVENING
     Route: 065
  17. PANTOPRAZOLE [Concomitant]
     Active Substance: PANTOPRAZOLE
     Route: 065
  18. PHLOROGLUCINOL [Concomitant]
     Active Substance: PHLOROGLUCINOL
     Indication: Abdominal pain
     Dosage: 1 TABLET IF NEEDED
     Route: 065
     Dates: start: 20230303
  19. ACETAMINOPHEN [Concomitant]
     Active Substance: ACETAMINOPHEN
     Route: 065
  20. ACETAMINOPHEN [Concomitant]
     Active Substance: ACETAMINOPHEN
     Dosage: UP TO 4 G/DAY
     Route: 065
  21. MOVICOL [Concomitant]
     Active Substance: POLYETHYLENE GLYCOL 3350\POTASSIUM CHLORIDE\SODIUM BICARBONATE\SODIUM CHLORIDE
     Dosage: 2 SACHETS MORNING AND NOON
     Route: 065
  22. MOVICOL [Concomitant]
     Active Substance: POLYETHYLENE GLYCOL 3350\POTASSIUM CHLORIDE\SODIUM BICARBONATE\SODIUM CHLORIDE
     Dosage: 1 SACHET MORNING NOON
     Route: 065
  23. MOVICOL [Concomitant]
     Active Substance: POLYETHYLENE GLYCOL 3350\POTASSIUM CHLORIDE\SODIUM BICARBONATE\SODIUM CHLORIDE
     Dosage: 2 SACHETS IN THE MORNING
     Route: 065
  24. MOVICOL [Concomitant]
     Active Substance: POLYETHYLENE GLYCOL 3350\POTASSIUM CHLORIDE\SODIUM BICARBONATE\SODIUM CHLORIDE
     Dosage: 4 UNIT UNSPECIFIED
     Route: 065
  25. DIETARY SUPPLEMENT [Concomitant]
     Active Substance: DIETARY SUPPLEMENT
     Dosage: 2 BOTTLES/DAY
     Route: 065
  26. CLINUTREN FRUIT [Concomitant]
     Dosage: ONE POT AT NOON
     Route: 065
  27. CLINUTREN FRUIT [Concomitant]
     Dosage: 4 BOTTLES TO BE TAKEN DURING THE DAY OUTSIDE OF MEALS
     Route: 065
  28. ALPRAZOLAM [Concomitant]
     Active Substance: ALPRAZOLAM
     Dosage: 1 TABLET IN THE EVENING
     Route: 065
  29. ALPRAZOLAM [Concomitant]
     Active Substance: ALPRAZOLAM
     Dosage: 1 TABLET IN THE EVENING BEFORE BED
     Route: 065
  30. CALCIUM PHOSPHATE, DIBASIC, ANHYDROUS\MAGNESIUM GLYCEROPHOSPHATE\PHOSP [Concomitant]
     Active Substance: CALCIUM PHOSPHATE, DIBASIC, ANHYDROUS\MAGNESIUM GLYCEROPHOSPHATE\PHOSPHORIC ACID\SODIUM PHOSPHATE, D
     Dosage: 50 DROPS MORNING AND NOON
     Route: 065
  31. PHLOROGLUCINOL [Concomitant]
     Active Substance: PHLOROGLUCINOL
     Indication: Abdominal pain
     Dosage: WHEN NEEDED
     Route: 065
  32. PHLOROGLUCINOL [Concomitant]
     Active Substance: PHLOROGLUCINOL
     Dosage: UP TO 3/DAY
     Route: 065
  33. PHLOROGLUCINOL [Concomitant]
     Active Substance: PHLOROGLUCINOL
     Dosage: 2 TABLETS IN THE MORNING, MIDDAY AND EVENING IF ABDOMINAL PAIN
     Route: 065
  34. ELIQUIS [Concomitant]
     Active Substance: APIXABAN
     Indication: Anticoagulant therapy
     Route: 065
  35. FRESUBIN MEGAREAL FIBRE [Concomitant]
     Indication: Malnutrition
     Dosage: ON NASOGASTRIC TUBE
     Route: 065
  36. FRESUBIN MEGAREAL FIBRE [Concomitant]
     Dosage: 1 L
     Route: 065

REACTIONS (13)
  - Deep vein thrombosis [Unknown]
  - Pulmonary infarction [Unknown]
  - Pleural effusion [Recovering/Resolving]
  - Ascites [Recovering/Resolving]
  - Pulmonary embolism [Recovering/Resolving]
  - Hypoalbuminaemia [Recovering/Resolving]
  - Generalised oedema [Recovering/Resolving]
  - Disease progression [Recovering/Resolving]
  - Hypokalaemia [Unknown]
  - Metabolic alkalosis [Unknown]
  - Hypomagnesaemia [Unknown]
  - Hypophosphataemia [Unknown]
  - Renal disorder [Unknown]

NARRATIVE: CASE EVENT DATE: 20230417
